FAERS Safety Report 6347834-4 (Version None)
Quarter: 2009Q3

REPORT INFORMATION
  Report Type: 
  Country: None (occurrence: None)
  Receive Date: 20090910
  Receipt Date: 20090902
  Transmission Date: 20100115
  Serious: Yes (Other)
  Sender: FDA-Public Use
  Company Number: B0591556A

PATIENT
  Age: 19 Year
  Sex: Female

DRUGS (3)
  1. RELENZA [Suspect]
     Indication: INFLUENZA
     Dosage: 10MG TWICE PER DAY
     Route: 055
     Dates: start: 20090831, end: 20090831
  2. CALONAL [Suspect]
     Indication: INFLUENZA
     Route: 065
     Dates: start: 20090831
  3. MEDICON [Suspect]
     Indication: INFLUENZA
     Route: 048
     Dates: start: 20090831

REACTIONS (2)
  - DELIRIUM [None]
  - SENSORY DISTURBANCE [None]
